FAERS Safety Report 9091565 (Version 1)
Quarter: 2013Q1

REPORT INFORMATION
  Report Type: Report from Study
  Country: US (occurrence: US)
  Receive Date: 20130131
  Receipt Date: 20130131
  Transmission Date: 20140127
  Serious: No
  Sender: FDA-Public Use
  Company Number: US-ABBOTT-12P-163-0992636-00

PATIENT
  Sex: Female
  Weight: 24.52 kg

DRUGS (4)
  1. HUMIRA [Suspect]
     Indication: CHRONIC RECURRENT MULTIFOCAL OSTEOMYELITIS
     Dates: start: 20120917
  2. LIDOCAINE [Concomitant]
     Indication: INJECTION SITE PAIN
  3. MELOXICAM [Concomitant]
     Indication: PAIN
  4. PREDNISONE [Concomitant]
     Indication: CHRONIC RECURRENT MULTIFOCAL OSTEOMYELITIS

REACTIONS (1)
  - Injection site pain [Not Recovered/Not Resolved]
